FAERS Safety Report 18570362 (Version 1)
Quarter: 2020Q4

REPORT INFORMATION
  Report Type: Report from Study
  Country: AU (occurrence: AU)
  Receive Date: 20201202
  Receipt Date: 20201202
  Transmission Date: 20210114
  Serious: Yes (Hospitalization)
  Sender: FDA-Public Use
  Company Number: AU-GW PHARMA-201807AUGW0271

PATIENT

DRUGS (6)
  1. LAMICTAL [Concomitant]
     Active Substance: LAMOTRIGINE
     Indication: TUBEROUS SCLEROSIS COMPLEX
     Dosage: 250 MILLIGRAM, BID
     Route: 048
     Dates: start: 201612
  2. PAXAM [CLONAZEPAM] [Concomitant]
     Active Substance: CLONAZEPAM
     Indication: TUBEROUS SCLEROSIS COMPLEX
     Dosage: 2 MILLIGRAM, QD (AT NIGHT)
     Route: 048
     Dates: start: 2006
  3. EPIDIOLEX [Suspect]
     Active Substance: CANNABIDIOL
     Dosage: 5MG/KG, 255 MILLIGRAM, QD
     Route: 048
     Dates: start: 20180808, end: 20180809
  4. LEVLEN [Concomitant]
     Active Substance: ETHINYL ESTRADIOL\LEVONORGESTREL
     Indication: CONTRACEPTION
     Dosage: 1 DOSAGE FORM, QD
     Route: 048
     Dates: start: 2006
  5. EPIDIOLEX [Suspect]
     Active Substance: CANNABIDIOL
     Indication: TUBEROUS SCLEROSIS COMPLEX
     Dosage: 15 MG/KG, 380 MILLIGRAM, BID
     Route: 048
     Dates: start: 20180426, end: 20180802
  6. EPILIM [Concomitant]
     Active Substance: VALPROATE SODIUM
     Indication: TUBEROUS SCLEROSIS COMPLEX
     Dosage: 2000 MILLIGRAM, QD
     Route: 048
     Dates: start: 201612

REACTIONS (4)
  - Nausea [Recovered/Resolved]
  - Electrolyte imbalance [Recovered/Resolved]
  - Vomiting [Recovered/Resolved]
  - Hypophagia [Recovered/Resolved]

NARRATIVE: CASE EVENT DATE: 20180622
